FAERS Safety Report 15682073 (Version 1)
Quarter: 2018Q4

REPORT INFORMATION
  Report Type: Spontaneous
  Country: US (occurrence: US)
  Receive Date: 20181203
  Receipt Date: 20181203
  Transmission Date: 20190205
  Serious: Yes (Other)
  Sender: FDA-Public Use
  Company Number: None

PATIENT
  Age: 70 Year
  Sex: Female
  Weight: 65.7 kg

DRUGS (1)
  1. ZELBORAF [Suspect]
     Active Substance: VEMURAFENIB
     Indication: RECTAL CANCER
     Route: 048
     Dates: start: 20181030

REACTIONS (2)
  - Therapy change [None]
  - Asthenia [None]

NARRATIVE: CASE EVENT DATE: 20181130
